FAERS Safety Report 19275856 (Version 1)
Quarter: 2021Q2

REPORT INFORMATION
  Report Type: Spontaneous
  Country: FR (occurrence: FR)
  Receive Date: 20210519
  Receipt Date: 20210519
  Transmission Date: 20210717
  Serious: Yes (Other)
  Sender: FDA-Public Use
  Company Number: FR-JNJFOC-20210530642

PATIENT
  Age: 39 Year
  Sex: Female
  Weight: 73 kg

DRUGS (4)
  1. OPTIMIZETTE [Concomitant]
     Active Substance: DESOGESTREL
  2. ARTHROCINE [Concomitant]
  3. FEXOFENADINE HYDROCHLORIDE. [Concomitant]
     Active Substance: FEXOFENADINE HYDROCHLORIDE
  4. SIMPONI [Suspect]
     Active Substance: GOLIMUMAB
     Indication: ANKYLOSING SPONDYLITIS
     Route: 058
     Dates: start: 20201118, end: 20210212

REACTIONS (2)
  - Condition aggravated [Recovering/Resolving]
  - Ventricular extrasystoles [Recovering/Resolving]

NARRATIVE: CASE EVENT DATE: 202011
